FAERS Safety Report 17416976 (Version 1)
Quarter: 2020Q1

REPORT INFORMATION
  Report Type: Spontaneous
  Country: CA (occurrence: CA)
  Receive Date: 20200214
  Receipt Date: 20200214
  Transmission Date: 20200409
  Serious: Yes (Other)
  Sender: FDA-Public Use
  Company Number: CA-AMGEN-CANSP2020025610

PATIENT
  Age: 59 Year
  Sex: Female

DRUGS (1)
  1. AIMOVIG [Suspect]
     Active Substance: ERENUMAB-AOOE
     Indication: MIGRAINE
     Dosage: 140 MILLIGRAM
     Route: 065
     Dates: start: 201908

REACTIONS (7)
  - Bowel movement irregularity [Unknown]
  - Gastrointestinal pain [Unknown]
  - Constipation [Unknown]
  - Chest pain [Unknown]
  - Rectal haemorrhage [Unknown]
  - Spinal pain [Unknown]
  - Abdominal pain [Unknown]
